FAERS Safety Report 19936282 (Version 3)
Quarter: 2022Q2

REPORT INFORMATION
  Report Type: Spontaneous
  Country: AR (occurrence: AR)
  Receive Date: 20211008
  Receipt Date: 20220428
  Transmission Date: 20220721
  Serious: Yes (Other)
  Sender: FDA-Public Use
  Company Number: AR-BIOMARINAP-AR-2021-138954

PATIENT
  Age: 6 Year
  Sex: Male

DRUGS (1)
  1. BRINEURA [Suspect]
     Active Substance: CERLIPONASE ALFA
     Indication: Neuronal ceroid lipofuscinosis
     Dosage: 300 MILLIGRAM, QOW
     Route: 020
     Dates: start: 20170704

REACTIONS (3)
  - Hydrocephalus [Unknown]
  - Cerebral ventricle dilatation [Unknown]
  - Seizure [Unknown]

NARRATIVE: CASE EVENT DATE: 20211001
